FAERS Safety Report 14982405 (Version 2)
Quarter: 2018Q3

REPORT INFORMATION
  Report Type: Spontaneous
  Country: IT (occurrence: IT)
  Receive Date: 20180607
  Receipt Date: 20180806
  Transmission Date: 20181010
  Serious: Yes (Other)
  Sender: FDA-Public Use
  Company Number: IT-BAUSCH-BL-2018-016031

PATIENT
  Age: 56 Year
  Sex: Female

DRUGS (11)
  1. RITUXIMAB. [Suspect]
     Active Substance: RITUXIMAB
     Dosage: 6 CYCLES
     Route: 065
     Dates: start: 200509
  2. ENDOXAN BAXTER [Suspect]
     Active Substance: CYCLOPHOSPHAMIDE
     Dosage: 4 CYCLES
     Route: 065
     Dates: start: 200509
  3. PREDNISONE. [Suspect]
     Active Substance: PREDNISONE
     Indication: B-CELL LYMPHOMA
     Dosage: 4 CYCLES
     Route: 065
     Dates: start: 200509
  4. DEXAMETHASONE. [Suspect]
     Active Substance: DEXAMETHASONE
     Indication: B-CELL LYMPHOMA
     Dosage: FOR DAYS 1?5 EVERY 4 WEEKS (PATIENT RECEIVED 4 CYCLES)
     Route: 065
     Dates: start: 200404
  5. ENDOXAN BAXTER [Suspect]
     Active Substance: CYCLOPHOSPHAMIDE
     Indication: B-CELL LYMPHOMA
     Dosage: HIGH?DOSE CYCLOPHOSPHAMIDE (HDCTX)
     Route: 065
     Dates: start: 200601
  6. NOVANTRONE [Suspect]
     Active Substance: MITOXANTRONE HYDROCHLORIDE
     Indication: B-CELL LYMPHOMA
     Dosage: FOR DAY 1, PATIENT RECEIVED 4 CYCLES
     Route: 065
     Dates: start: 200404
  7. FLUDARABINE [Suspect]
     Active Substance: FLUDARABINE PHOSPHATE
     Indication: B-CELL LYMPHOMA
     Dosage: FOR DAYS 1?3, PATIENT RECEIVED 4 CYCLES
     Route: 065
     Dates: start: 200404
  8. ADRIAMYCIN [Suspect]
     Active Substance: DOXORUBICIN HYDROCHLORIDE
     Indication: B-CELL LYMPHOMA
     Dosage: 4 CYCLES
     Route: 065
     Dates: start: 200509
  9. VINCRISTINE [Suspect]
     Active Substance: VINCRISTINE
     Indication: B-CELL LYMPHOMA
     Dosage: 4 CYCLES
     Route: 065
     Dates: start: 200509
  10. RITUXIMAB. [Suspect]
     Active Substance: RITUXIMAB
     Indication: B-CELL LYMPHOMA
     Dosage: PATIENT RECEIVED 4 CYCLES
     Route: 065
     Dates: start: 200404
  11. RITUXIMAB. [Suspect]
     Active Substance: RITUXIMAB
     Dosage: EVERY 3 MONTHS
     Route: 065
     Dates: start: 200601

REACTIONS (1)
  - Acute myeloid leukaemia [Unknown]
